FAERS Safety Report 24790180 (Version 3)
Quarter: 2025Q1

REPORT INFORMATION
  Report Type: Spontaneous
  Country: BR (occurrence: BR)
  Receive Date: 20241230
  Receipt Date: 20250205
  Transmission Date: 20250409
  Serious: No
  Sender: BIOGEN
  Company Number: BR-BIOGEN-2024BI01295118

PATIENT
  Sex: Male
  Weight: 101 kg

DRUGS (2)
  1. TECFIDERA [Suspect]
     Active Substance: DIMETHYL FUMARATE
     Indication: Relapsing-remitting multiple sclerosis
     Route: 050
     Dates: start: 2017
  2. FINGOLIMOD [Suspect]
     Active Substance: FINGOLIMOD
     Indication: Product used for unknown indication
     Route: 050

REACTIONS (2)
  - Multiple sclerosis [Unknown]
  - Treatment failure [Unknown]

NARRATIVE: CASE EVENT DATE: 20230101
